FAERS Safety Report 9800069 (Version 1)
Quarter: 2014Q1

REPORT INFORMATION
  Report Type: Spontaneous
  Country: US (occurrence: US)
  Receive Date: 20140106
  Receipt Date: 20140106
  Transmission Date: 20141002
  Serious: No
  Sender: FDA-Public Use
  Company Number: US-GILEAD-2010-0032175

PATIENT
  Age: 78 Year
  Sex: Female
  Weight: 62.6 kg

DRUGS (15)
  1. LETAIRIS [Suspect]
     Indication: PULMONARY ARTERIAL HYPERTENSION
     Route: 048
     Dates: start: 20091002
  2. OXYGEN [Concomitant]
  3. WARFARIN [Concomitant]
  4. VIAGRA [Concomitant]
  5. SILDENAFIL [Concomitant]
  6. REMODULIN [Concomitant]
  7. FUROSEMIDE [Concomitant]
  8. CALCIUM + D [Concomitant]
  9. CENTRUM SILVER [Concomitant]
  10. VITAMIN C [Concomitant]
  11. SUPER B COMPLEX TABLET [Concomitant]
  12. TYLENOL ER [Concomitant]
  13. BUPROPION SR [Concomitant]
  14. POTASSIUM CHLORIDE [Concomitant]
  15. OMEPRAZOLE [Concomitant]

REACTIONS (1)
  - Dizziness [Unknown]
